FAERS Safety Report 8922531 (Version 2)
Quarter: 2012Q4

REPORT INFORMATION
  Report Type: 
  Country: US (occurrence: US)
  Receive Date: 20121123
  Receipt Date: 20121130
  Transmission Date: 20130627
  Serious: No
  Sender: FDA-Public Use
  Company Number: US-PFIZER INC-2012290084

PATIENT
  Age: 66 Year
  Sex: Female
  Weight: 48.5 kg

DRUGS (2)
  1. PREMARIN [Suspect]
     Indication: VAGINAL DRYNESS
     Dosage: UNK, 1x/day
     Route: 067
     Dates: start: 2012, end: 2012
  2. KLONOPIN [Concomitant]
     Indication: ANXIETY
     Dosage: UNK

REACTIONS (1)
  - Vulvovaginal burning sensation [Unknown]
